FAERS Safety Report 16245562 (Version 1)
Quarter: 2019Q2

REPORT INFORMATION
  Report Type: Spontaneous
  Country: DE (occurrence: DE)
  Receive Date: 20190426
  Receipt Date: 20190426
  Transmission Date: 20190711
  Serious: Yes (Other)
  Sender: FDA-Public Use
  Company Number: PHHY2019DE095362

PATIENT
  Sex: Male
  Weight: 140 kg

DRUGS (1)
  1. AMOXI 1A PHARMA [Suspect]
     Active Substance: AMOXICILLIN
     Indication: OTITIS MEDIA
     Dosage: UNK
     Route: 048

REACTIONS (8)
  - Tachycardia [Unknown]
  - Cardiovascular disorder [Unknown]
  - Diarrhoea [Unknown]
  - Circulatory collapse [Unknown]
  - Nausea [Unknown]
  - Fatigue [Unknown]
  - Faeces discoloured [Unknown]
  - Malaise [Unknown]
